FAERS Safety Report 18570389 (Version 1)
Quarter: 2020Q4

REPORT INFORMATION
  Report Type: Report from Study
  Country: US (occurrence: US)
  Receive Date: 20201202
  Receipt Date: 20201202
  Transmission Date: 20210114
  Serious: Yes (Hospitalization)
  Sender: FDA-Public Use
  Company Number: US-GW PHARMA-201802USGW0111

PATIENT

DRUGS (10)
  1. ONFI [Concomitant]
     Active Substance: CLOBAZAM
     Dosage: 10MG QAM
     Route: 048
     Dates: start: 20160506, end: 20180130
  2. KEPPRA [Concomitant]
     Active Substance: LEVETIRACETAM
     Indication: TUBEROUS SCLEROSIS COMPLEX
     Dosage: 1000 MILLIGRAM, BID
     Route: 048
     Dates: start: 2008, end: 201803
  3. KEPPRA [Concomitant]
     Active Substance: LEVETIRACETAM
     Dosage: 1500 MILLIGRAM, BID
     Dates: start: 201803
  4. ONFI [Concomitant]
     Active Substance: CLOBAZAM
     Dosage: 20 MILLIGRAM, BID
     Route: 048
     Dates: start: 20180214
  5. LAMICTAL [Concomitant]
     Active Substance: LAMOTRIGINE
     Indication: TUBEROUS SCLEROSIS COMPLEX
     Dosage: 500 MILLIGRAM, QD, 200 MG QAM, 300MG QHS
     Route: 048
     Dates: start: 20031117, end: 2018
  6. VITAMIN D [Concomitant]
     Active Substance: VITAMIN D NOS
     Indication: SUPPLEMENTATION THERAPY
     Dosage: 5000 IU (INTERNATIONAL UNIT), QD
     Route: 048
     Dates: start: 2016
  7. ONFI [Concomitant]
     Active Substance: CLOBAZAM
     Indication: TUBEROUS SCLEROSIS COMPLEX
     Dosage: 20 MG, QHS
     Route: 048
     Dates: start: 20160506, end: 20180129
  8. ONFI [Concomitant]
     Active Substance: CLOBAZAM
     Dosage: 10 MILLIGRAM, BID
     Route: 048
     Dates: start: 20180130, end: 20180213
  9. VALIUM [Concomitant]
     Active Substance: DIAZEPAM
     Indication: TUBEROUS SCLEROSIS COMPLEX
     Dosage: 20 MILLIGRAM, PRN
     Route: 002
     Dates: start: 20170915
  10. EPIDIOLEX [Suspect]
     Active Substance: CANNABIDIOL
     Indication: TUBEROUS SCLEROSIS COMPLEX
     Dosage: 50 MG/KG, 2955 MILLIGRAM, QD
     Route: 048
     Dates: start: 20180115, end: 20180213

REACTIONS (2)
  - Sedation [Recovered/Resolved]
  - Seizure [Recovered/Resolved]

NARRATIVE: CASE EVENT DATE: 20180213
